FAERS Safety Report 7880597-X (Version None)
Quarter: 2011Q4

REPORT INFORMATION
  Report Type: 
  Country: None (occurrence: None)
  Receive Date: 20111101
  Receipt Date: 20100615
  Transmission Date: 20120403
  Serious: No
  Sender: FDA-Public Use
  Company Number: US-BAYER-201025759NA

PATIENT
  Age: 74 Year
  Sex: Male

DRUGS (8)
  1. ATIVAN [Concomitant]
  2. LEVITRA [Suspect]
     Dosage: 10 MG, ONCE
     Dates: start: 20100401
  3. LEVBID [Concomitant]
  4. CLARITIN [Concomitant]
  5. TYLENOL REGULAR [Concomitant]
  6. LEVITRA [Suspect]
     Indication: ERECTILE DYSFUNCTION
     Dosage: 5 MG, ONCE
     Dates: start: 20100401
  7. DARVOCET [Concomitant]
  8. LEVITRA [Suspect]
     Dosage: 20 MG, ONCE
     Dates: start: 20100401

REACTIONS (1)
  - ERECTILE DYSFUNCTION [None]
